FAERS Safety Report 6279397-6 (Version None)
Quarter: 2009Q3

REPORT INFORMATION
  Report Type: 
  Country: None (occurrence: None)
  Receive Date: 20090721
  Receipt Date: 20090709
  Transmission Date: 20100115
  Serious: Yes (Hospitalization, Disabling, Other)
  Sender: FDA-Public Use
  Company Number: 2009-00811

PATIENT
  Age: 69 Year
  Sex: Female
  Weight: 65 kg

DRUGS (1)
  1. VELCADE [Suspect]
     Indication: MULTIPLE MYELOMA
     Dosage: INTRAVENOUS
     Route: 042
     Dates: start: 20070301, end: 20081101

REACTIONS (6)
  - DEMYELINATING POLYNEUROPATHY [None]
  - DISEASE PROGRESSION [None]
  - GAIT DISTURBANCE [None]
  - MULTIPLE MYELOMA [None]
  - PERIPHERAL SENSORIMOTOR NEUROPATHY [None]
  - QUADRIPARESIS [None]
